FAERS Safety Report 15129379 (Version 3)
Quarter: 2018Q3

REPORT INFORMATION
  Report Type: Spontaneous
  Country: JP (occurrence: JP)
  Receive Date: 20180711
  Receipt Date: 20180723
  Transmission Date: 20181010
  Serious: Yes (Other)
  Sender: FDA-Public Use
  Company Number: JP-GLAXOSMITHKLINE-JP2018JPN118560

PATIENT
  Age: 82 Year
  Sex: Female

DRUGS (1)
  1. NICOTINE TRANSDERMAL SYSTEM [Suspect]
     Active Substance: NICOTINE
     Indication: SMOKING CESSATION THERAPY
     Dosage: UNK
     Route: 050
     Dates: start: 20180702

REACTIONS (6)
  - Tobacco withdrawal symptoms [Unknown]
  - Hip surgery [Unknown]
  - Panic reaction [Unknown]
  - Hallucination [Unknown]
  - Nicotine dependence [Unknown]
  - Treatment noncompliance [Unknown]

NARRATIVE: CASE EVENT DATE: 201807
